FAERS Safety Report 17899896 (Version 1)
Quarter: 2020Q2

REPORT INFORMATION
  Report Type: Spontaneous
  Country: CA (occurrence: CA)
  Receive Date: 20200616
  Receipt Date: 20200616
  Transmission Date: 20200714
  Serious: Yes (Life-Threatening, Hospitalization)
  Sender: FDA-Public Use
  Company Number: CA-ROCHE-2622380

PATIENT
  Age: 68 Year
  Sex: Female
  Weight: 77 kg

DRUGS (17)
  1. ATORVASTATIN [Concomitant]
     Active Substance: ATORVASTATIN
     Route: 065
  2. METFORMIN [Concomitant]
     Active Substance: METFORMIN HYDROCHLORIDE
     Route: 065
  3. VENLAFAXINE HYDROCHLORIDE. [Concomitant]
     Active Substance: VENLAFAXINE HYDROCHLORIDE
  4. DOCETAXEL. [Suspect]
     Active Substance: DOCETAXEL
     Indication: BREAST CANCER FEMALE
     Route: 042
  5. CARBOPLATIN. [Suspect]
     Active Substance: CARBOPLATIN
     Indication: BREAST CANCER FEMALE
     Route: 042
  6. ASPIRIN [ACETYLSALICYLIC ACID] [Concomitant]
     Active Substance: ASPIRIN
  7. ATACAND [Concomitant]
     Active Substance: CANDESARTAN CILEXETIL
     Route: 065
  8. CIPRALEX [Concomitant]
     Active Substance: ESCITALOPRAM OXALATE
     Route: 065
  9. CLONAZEPAM. [Concomitant]
     Active Substance: CLONAZEPAM
     Route: 065
  10. CYANOCOBALAMIN. [Concomitant]
     Active Substance: CYANOCOBALAMIN
  11. ERGOCALCIFEROL. [Concomitant]
     Active Substance: ERGOCALCIFEROL
  12. OMEGA 3 SELECT [Concomitant]
     Active Substance: FISH OIL
     Route: 065
  13. PARIET [Concomitant]
     Active Substance: RABEPRAZOLE SODIUM
  14. TRASTUZUMAB. [Suspect]
     Active Substance: TRASTUZUMAB
     Indication: BREAST CANCER FEMALE
     Route: 041
  15. MINOCIN [Concomitant]
     Active Substance: MINOCYCLINE HYDROCHLORIDE
     Route: 065
  16. NIFEDIPINE. [Concomitant]
     Active Substance: NIFEDIPINE
     Route: 065
  17. ZANTAC [Concomitant]
     Active Substance: RANITIDINE HYDROCHLORIDE

REACTIONS (6)
  - Pyrexia [Unknown]
  - Acute respiratory distress syndrome [Unknown]
  - Dyspnoea [Unknown]
  - Barotrauma [Unknown]
  - Pneumonia [Unknown]
  - Respiratory distress [Unknown]
